FAERS Safety Report 7981961-0 (Version None)
Quarter: 2011Q4

REPORT INFORMATION
  Report Type: 
  Country: None (occurrence: None)
  Receive Date: 20111215
  Receipt Date: 20111205
  Transmission Date: 20120403
  Serious: Yes (Other)
  Sender: FDA-Public Use
  Company Number: IT-JNJFOC-20111200571

PATIENT
  Sex: Male

DRUGS (1)
  1. IBUPROFEN [Suspect]
     Indication: PYREXIA
     Route: 048
     Dates: start: 20110924, end: 20110924

REACTIONS (5)
  - EYE OEDEMA [None]
  - URTICARIA [None]
  - HYPERSENSITIVITY [None]
  - RESPIRATORY DISTRESS [None]
  - PRURITUS GENERALISED [None]
